FAERS Safety Report 14484151 (Version 2)
Quarter: 2018Q2

REPORT INFORMATION
  Report Type: Spontaneous
  Country: PT (occurrence: PT)
  Receive Date: 20180205
  Receipt Date: 20180409
  Transmission Date: 20180711
  Serious: Yes (Other)
  Sender: FDA-Public Use
  Company Number: PT-ROCHE-2066501

PATIENT
  Age: 61 Year
  Sex: Female

DRUGS (2)
  1. TRIAMCINOLONE ACETONIDE. [Suspect]
     Active Substance: TRIAMCINOLONE ACETONIDE
     Indication: CYSTOID MACULAR OEDEMA
     Route: 031
  2. RANIBIZUMAB. [Suspect]
     Active Substance: RANIBIZUMAB
     Indication: CYSTOID MACULAR OEDEMA
     Dosage: LOADING DOSE OF 3 INTRAVITREAL INJECTIONS
     Route: 031

REACTIONS (4)
  - Cataract [Unknown]
  - Intraocular pressure increased [Recovering/Resolving]
  - Therapeutic response decreased [Unknown]
  - Cystoid macular oedema [Recovered/Resolved]
